FAERS Safety Report 9743062 (Version 2)
Quarter: 2013Q4

REPORT INFORMATION
  Report Type: Spontaneous
  Country: US (occurrence: US)
  Receive Date: 20131210
  Receipt Date: 20131210
  Transmission Date: 20140711
  Serious: No
  Sender: FDA-Public Use
  Company Number: US-TEVA-224942USA

PATIENT
  Age: 28 Year
  Sex: Female
  Weight: 75.82 kg

DRUGS (4)
  1. PARAGARD COPPER TCU 380A [Suspect]
     Indication: CONTRACEPTION
     Route: 015
     Dates: start: 20091123, end: 20091229
  2. PARAGARD COPPER TCU 380A [Suspect]
     Route: 015
     Dates: start: 20100126, end: 20100216
  3. LISINOPRIL [Concomitant]
     Indication: HYPERTENSION
     Route: 048
     Dates: start: 200911
  4. MULTIVITAMIN                       /00831701/ [Concomitant]
     Indication: NUTRITIONAL SUPPLEMENTATION

REACTIONS (1)
  - Device expulsion [Recovered/Resolved]
